FAERS Safety Report 22045295 (Version 1)
Quarter: 2023Q1

REPORT INFORMATION
  Report Type: Spontaneous
  Country: US (occurrence: None)
  Receive Date: 20230227
  Receipt Date: 20230227
  Transmission Date: 20230417
  Serious: Yes (Hospitalization)
  Sender: FDA-Public Use
  Company Number: None

PATIENT
  Age: 50 Year
  Sex: Male

DRUGS (11)
  1. TACROLIMUS [Suspect]
     Active Substance: TACROLIMUS
     Indication: Liver transplant
     Dosage: FREQUENCY : 4 TIMES A DAY;?
     Route: 048
     Dates: start: 20230125
  2. MYCOPHENOLIC ACID [Suspect]
     Active Substance: MYCOPHENOLIC ACID
     Indication: Liver transplant
     Dosage: FREQUENCY : TWICE A DAY;?
     Route: 048
     Dates: start: 20230125
  3. bactrim 400-80mg [Concomitant]
     Dates: start: 20230125
  4. PREDNISONE [Concomitant]
     Active Substance: PREDNISONE
     Dates: start: 20230125
  5. VALACYCLOVIR HYDROCHLORIDE [Concomitant]
     Active Substance: VALACYCLOVIR HYDROCHLORIDE
     Dates: start: 20230125
  6. OMEPRAZOLE [Concomitant]
     Active Substance: OMEPRAZOLE
     Dates: start: 20230125
  7. acetaminophen 325mg [Concomitant]
     Dates: start: 20230125
  8. DOCUSATE [Concomitant]
     Active Substance: DOCUSATE
     Dates: start: 20230125
  9. POLYETHYLENE GLYCOL 3350 [Concomitant]
     Active Substance: POLYETHYLENE GLYCOL 3350
     Dates: start: 20230125
  10. senna 8.6mg [Concomitant]
     Dates: start: 20230125
  11. k-phos neutral 250mg [Concomitant]
     Dates: start: 20230125

REACTIONS (4)
  - Liver transplant [None]
  - Post procedural infection [None]
  - Fluid retention [None]
  - Post procedural bile leak [None]

NARRATIVE: CASE EVENT DATE: 20230217
